FAERS Safety Report 15964737 (Version 2)
Quarter: 2019Q1

REPORT INFORMATION
  Report Type: Spontaneous
  Country: JP (occurrence: JP)
  Receive Date: 20190215
  Receipt Date: 20190307
  Transmission Date: 20190418
  Serious: Yes (Other)
  Sender: FDA-Public Use
  Company Number: JP-GLAXOSMITHKLINE-JP2019JPN021051

PATIENT
  Age: 8 Decade
  Sex: Male

DRUGS (7)
  1. TAKECAB [Concomitant]
     Active Substance: VONOPRAZAN FUMURATE
     Indication: PEPTIC ULCER
     Dosage: UNK
     Route: 048
  2. AVOLVE [Suspect]
     Active Substance: DUTASTERIDE
     Indication: BENIGN PROSTATIC HYPERPLASIA
     Dosage: 0.5 MG, QD
     Route: 048
     Dates: start: 201808, end: 201902
  3. HARNAL [Concomitant]
     Active Substance: TAMSULOSIN HYDROCHLORIDE
     Indication: BENIGN PROSTATIC HYPERPLASIA
     Dosage: UNK
     Route: 048
  4. DAIKENCHUTO [Concomitant]
     Active Substance: HERBALS
     Indication: DIVERTICULUM
     Dosage: UNK
     Route: 048
  5. COLONEL [Concomitant]
     Active Substance: CALCIUM POLYCARBOPHIL
     Indication: DIVERTICULUM
     Dosage: UNK
     Route: 048
  6. HACHIMIJIOGAN EXTRACT GRANULES [Concomitant]
     Indication: DIVERTICULUM
     Dosage: UNK
     Route: 048
  7. MOSAPRIDE CITRATE HYDRATE [Concomitant]
     Active Substance: MOSAPRIDE CITRATE DIHYDRATE
     Indication: DIVERTICULUM
     Dosage: 5 MG, 1D
     Route: 048

REACTIONS (4)
  - Abdominal pain [Recovering/Resolving]
  - Anorectal discomfort [Recovering/Resolving]
  - Abdominal distension [Recovering/Resolving]
  - Dyschezia [Recovering/Resolving]

NARRATIVE: CASE EVENT DATE: 201902
